FAERS Safety Report 4863752-2 (Version None)
Quarter: 2005Q4

REPORT INFORMATION
  Report Type: 
  Country: None (occurrence: None)
  Receive Date: 20051222
  Receipt Date: 20050718
  Transmission Date: 20060501
  Serious: No
  Sender: FDA-Public Use
  Company Number: US-GLAXOSMITHKLINE-A0566685A

PATIENT
  Age: 82 Year
  Sex: Female

DRUGS (11)
  1. FLOVENT [Suspect]
     Dosage: 2PUFF TWICE PER DAY
     Route: 055
     Dates: start: 20010101
  2. FLONASE [Concomitant]
  3. EXTRA STRENGTH TYLENOL [Concomitant]
  4. LEVOXYL [Concomitant]
  5. LANOXIN [Concomitant]
  6. TRAVATAN [Concomitant]
     Route: 065
  7. COUMADIN [Concomitant]
  8. FOSAMAX [Concomitant]
  9. ACIPHEX [Concomitant]
  10. VITAMIN B-12 [Concomitant]
  11. VITAMINS [Concomitant]

REACTIONS (2)
  - COUGH [None]
  - NASAL CONGESTION [None]
